FAERS Safety Report 9773229 (Version 1)
Quarter: 2013Q4

REPORT INFORMATION
  Report Type: Spontaneous
  Country: US (occurrence: US)
  Receive Date: 20131219
  Receipt Date: 20131219
  Transmission Date: 20140711
  Serious: Yes (Death, Hospitalization)
  Sender: FDA-Public Use
  Company Number: US-GLAXOSMITHKLINE-A1053940A

PATIENT
  Age: 69 Year
  Sex: Female

DRUGS (2)
  1. ARIXTRA [Suspect]
     Indication: BRAIN NEOPLASM MALIGNANT
     Route: 058
  2. PAIN MEDICATION [Concomitant]

REACTIONS (2)
  - Brain neoplasm malignant [Fatal]
  - Brain neoplasm [Fatal]
